FAERS Safety Report 6286819-3 (Version None)
Quarter: 2009Q3

REPORT INFORMATION
  Report Type: 
  Country: None (occurrence: None)
  Receive Date: 20090728
  Receipt Date: 20090727
  Transmission Date: 20100115
  Serious: Yes (Other)
  Sender: FDA-Public Use
  Company Number: BR-TEVA-203531USA

PATIENT
  Age: 19 Year
  Sex: Male
  Weight: 64 kg

DRUGS (2)
  1. PIMOZIDE TABLETS [Suspect]
     Indication: SOCIAL PHOBIA
     Dates: start: 20090101
  2. CLOMIPRAMINE HCL [Concomitant]
     Indication: OBSESSIVE-COMPULSIVE DISORDER

REACTIONS (3)
  - MUSCLE RIGIDITY [None]
  - SPEECH DISORDER [None]
  - TONGUE DISORDER [None]
